FAERS Safety Report 7392707-1 (Version None)
Quarter: 2011Q2

REPORT INFORMATION
  Report Type: 
  Country: None (occurrence: None)
  Receive Date: 20110404
  Receipt Date: 20110330
  Transmission Date: 20111010
  Serious: Yes (Other)
  Sender: FDA-Public Use
  Company Number: US-PFIZER INC-2011047521

PATIENT
  Sex: Female
  Weight: 68.027 kg

DRUGS (4)
  1. CHANTIX [Suspect]
     Dosage: 0.5 MG, 2X/DAY
     Dates: end: 20110301
  2. SEROQUEL [Concomitant]
     Dosage: UNK
  3. CHANTIX [Suspect]
     Indication: SMOKING CESSATION THERAPY
     Dosage: 0.5 MG, 1X/DAY
     Route: 048
     Dates: start: 20110226
  4. CHANTIX [Suspect]
     Dosage: UNK
     Dates: start: 20110101

REACTIONS (8)
  - IRRITABILITY [None]
  - APATHY [None]
  - ANXIETY [None]
  - STRESS [None]
  - MOOD ALTERED [None]
  - IMPATIENCE [None]
  - MENTAL DISORDER [None]
  - DEPRESSED MOOD [None]
